FAERS Safety Report 6612086-4 (Version None)
Quarter: 2010Q1

REPORT INFORMATION
  Report Type: 
  Country: None (occurrence: None)
  Receive Date: 20100303
  Receipt Date: 20100223
  Transmission Date: 20100710
  Serious: Yes (Hospitalization)
  Sender: FDA-Public Use
  Company Number: B0636974A

PATIENT
  Age: 53 Year
  Sex: Female

DRUGS (2)
  1. TYVERB [Suspect]
     Dosage: 1250MG PER DAY
     Route: 065
     Dates: start: 20091001
  2. CAPECITABINE [Concomitant]
     Route: 065

REACTIONS (3)
  - INFECTION [None]
  - ONYCHOMYCOSIS [None]
  - SUPERINFECTION [None]
